FAERS Safety Report 24613368 (Version 2)
Quarter: 2024Q4

REPORT INFORMATION
  Report Type: Spontaneous
  Country: JP (occurrence: JP)
  Receive Date: 20241113
  Receipt Date: 20241121
  Transmission Date: 20250114
  Serious: Yes (Death, Other)
  Sender: DAIICHI
  Company Number: JP-DSJP-DS-2024-107235-JP

PATIENT
  Age: 55 Year
  Sex: Female

DRUGS (3)
  1. ENHERTU [Suspect]
     Active Substance: FAM-TRASTUZUMAB DERUXTECAN-NXKI
     Indication: HER2 low breast cancer
     Dosage: UNK
     Route: 041
     Dates: start: 202307, end: 2024
  2. PACLITAXEL [Suspect]
     Active Substance: PACLITAXEL
     Indication: HER2 low breast cancer
     Dosage: UNK
     Route: 065
     Dates: start: 202404
  3. BEVACIZUMAB [Suspect]
     Active Substance: BEVACIZUMAB
     Indication: HER2 low breast cancer
     Dosage: UNK
     Route: 065
     Dates: start: 202404

REACTIONS (2)
  - Death [Fatal]
  - Interstitial lung disease [Unknown]

NARRATIVE: CASE EVENT DATE: 20240501
